FAERS Safety Report 23814835 (Version 3)
Quarter: 2024Q2

REPORT INFORMATION
  Report Type: Report from Study
  Country: US (occurrence: US)
  Receive Date: 20240503
  Receipt Date: 20240607
  Transmission Date: 20240716
  Serious: Yes (Life-Threatening, Hospitalization, Other)
  Sender: FDA-Public Use
  Company Number: US-Merck Healthcare KGaA-2024022583

PATIENT
  Age: 39 Year
  Sex: Female

DRUGS (2)
  1. MAVENCLAD [Suspect]
     Active Substance: CLADRIBINE
     Indication: Multiple sclerosis
     Dosage: YEAR ONE THERAPY
     Route: 048
     Dates: start: 20230224, end: 20230325
  2. MAVENCLAD [Suspect]
     Active Substance: CLADRIBINE
     Dosage: YEAR TWO MONTH ONE THERAPY.?THE PATIENT WAS ON DAY 4 AS OF 24-APR-2024 AND THE THERAPY WAS ON HOLD.
     Route: 048

REACTIONS (4)
  - Pneumonia streptococcal [Recovering/Resolving]
  - Myalgia [Unknown]
  - Back pain [Unknown]
  - Cardiac failure [Unknown]
